FAERS Safety Report 9066385 (Version 1)
Quarter: 2013Q1

REPORT INFORMATION
  Report Type: Report from Study
  Country: US (occurrence: US)
  Receive Date: 20130131
  Receipt Date: 20130131
  Transmission Date: 20140127
  Serious: No
  Sender: FDA-Public Use
  Company Number: US-ABBOTT-12P-163-1007629-00

PATIENT
  Age: 56 Year
  Sex: Female

DRUGS (10)
  1. HUMIRA [Suspect]
     Indication: PSORIATIC ARTHROPATHY
  2. DILTIAZEM [Concomitant]
     Indication: BLOOD PRESSURE
     Dosage: 360 MG DAILY
  3. OTC LORATADINE [Concomitant]
     Indication: HYPERSENSITIVITY
     Dosage: 10 MG DAILY
  4. SPIRONOLACTONE [Concomitant]
     Indication: SWELLING
     Dosage: 25 MG DAILY
  5. HCTZ [Concomitant]
     Indication: SWELLING
     Dosage: 25 MG DAILY
  6. GENERIC LIPIOR [Concomitant]
     Indication: BLOOD CHOLESTEROL INCREASED
     Dosage: 10 MG DAILY
  7. VICTOZA [Concomitant]
     Indication: DIABETES MELLITUS
     Dosage: 1.8 MG DAILY (PEN)
  8. GENERIC LASIX [Concomitant]
     Indication: SWELLING
  9. VITAMIN D3 [Concomitant]
     Indication: VITAMIN SUPPLEMENTATION
     Dosage: 2000 IU DAILY
  10. FISH OIL [Concomitant]
     Indication: VITAMIN SUPPLEMENTATION

REACTIONS (3)
  - Malaise [Recovering/Resolving]
  - Chills [Recovering/Resolving]
  - Pain [Recovering/Resolving]
